FAERS Safety Report 9354834 (Version 3)
Quarter: 2013Q3

REPORT INFORMATION
  Report Type: Spontaneous
  Country: US (occurrence: US)
  Receive Date: 20130619
  Receipt Date: 20130729
  Transmission Date: 20140515
  Serious: Yes (Other)
  Sender: FDA-Public Use
  Company Number: US-009507513-1306USA004453

PATIENT
  Sex: Male

DRUGS (5)
  1. VICTRELIS [Suspect]
     Indication: HEPATITIS C
     Dosage: 200 MG, 4 CAPSULES , THREE TIMES DAILY
     Route: 048
     Dates: start: 20130512
  2. VICTRELIS [Suspect]
     Dosage: UNK
  3. REBETOL [Suspect]
     Route: 048
  4. PEGASYS [Suspect]
     Dosage: UNKNOWN
  5. PROCRIT [Concomitant]
     Dosage: 40,0000 UNITS

REACTIONS (4)
  - Aphonia [Unknown]
  - Dyspnoea [Not Recovered/Not Resolved]
  - Red blood cell count decreased [Recovered/Resolved]
  - Product quality issue [Unknown]
